FAERS Safety Report 19614432 (Version 1)
Quarter: 2021Q3

REPORT INFORMATION
  Report Type: Report from Study
  Country: None (occurrence: US)
  Receive Date: 20210727
  Receipt Date: 20210727
  Transmission Date: 20211014
  Serious: Yes (Other)
  Sender: FDA-Public Use
  Company Number: US-ABBVIE-21K-163-4005673-00

PATIENT
  Sex: Male

DRUGS (2)
  1. VENCLEXTA [Suspect]
     Active Substance: VENETOCLAX
     Indication: PRODUCT USED FOR UNKNOWN INDICATION
     Route: 048
  2. LASIX [Concomitant]
     Active Substance: FUROSEMIDE
     Indication: PRODUCT USED FOR UNKNOWN INDICATION

REACTIONS (13)
  - Ascites [Unknown]
  - Blood potassium decreased [Unknown]
  - Weight decreased [Unknown]
  - Swelling [Unknown]
  - Blood sodium decreased [Unknown]
  - Hepatic cirrhosis [Unknown]
  - Nausea [Unknown]
  - Dyspnoea [Unknown]
  - Blood bilirubin increased [Unknown]
  - Blood count abnormal [Unknown]
  - Visual impairment [Unknown]
  - Splenomegaly [Unknown]
  - Unevaluable event [Unknown]
